FAERS Safety Report 10643654 (Version 1)
Quarter: 2014Q4

REPORT INFORMATION
  Report Type: Spontaneous
  Country: CN (occurrence: CN)
  Receive Date: 20141210
  Receipt Date: 20141210
  Transmission Date: 20150529
  Serious: Yes (Other)
  Sender: FDA-Public Use
  Company Number: CN-ASTELLAS-2014US019656

PATIENT
  Age: 73 Year
  Sex: Female

DRUGS (1)
  1. PROTOPIC [Suspect]
     Active Substance: TACROLIMUS
     Indication: ROSACEA
     Dosage: UNK, TWICE DAILY
     Route: 061
     Dates: start: 201411, end: 20141205

REACTIONS (3)
  - Papule [Not Recovered/Not Resolved]
  - Off label use [Recovered/Resolved]
  - Application site haemorrhage [Not Recovered/Not Resolved]

NARRATIVE: CASE EVENT DATE: 201411
